FAERS Safety Report 18023746 (Version 2)
Quarter: 2020Q3

REPORT INFORMATION
  Report Type: Report from Study
  Country: None (occurrence: US)
  Receive Date: 20200715
  Receipt Date: 20200731
  Transmission Date: 20201103
  Serious: Yes (Hospitalization, Other)
  Sender: FDA-Public Use
  Company Number: US-BIOVITRUM-2019US2677

PATIENT
  Age: 47 Year
  Sex: Female

DRUGS (1)
  1. KINERET [Suspect]
     Active Substance: ANAKINRA
     Indication: STILL^S DISEASE
     Route: 058
     Dates: start: 20190415

REACTIONS (11)
  - Off label use [Unknown]
  - Nephrolithiasis [Recovered/Resolved]
  - Condition aggravated [Unknown]
  - Red blood cell count increased [Unknown]
  - Joint stiffness [Unknown]
  - Inflammation [Unknown]
  - Still^s disease [Unknown]
  - Joint swelling [Unknown]
  - Product dose omission issue [Unknown]
  - Renal disorder [Unknown]
  - Urinary tract infection [Unknown]

NARRATIVE: CASE EVENT DATE: 20190415
